FAERS Safety Report 12190030 (Version 1)
Quarter: 2016Q1

REPORT INFORMATION
  Report Type: Report from Study
  Country: IN (occurrence: IN)
  Receive Date: 20160318
  Receipt Date: 20160318
  Transmission Date: 20160526
  Serious: Yes (Hospitalization)
  Sender: FDA-Public Use
  Company Number: IN-ROCHE-1709377

PATIENT
  Age: 57 Year
  Sex: Female

DRUGS (14)
  1. AMLODIPINE [Concomitant]
     Active Substance: AMLODIPINE BESYLATE
     Dosage: 5MG ORALLY TWO TIMES A DAY
     Route: 048
     Dates: start: 20151223
  2. CEFUROXIME. [Concomitant]
     Active Substance: CEFUROXIME
     Dosage: 500MG ORALLY TWO TIMES A DAY FOR 7 DAYS
     Route: 048
     Dates: start: 20151223
  3. PANTOPRAZOLE [Concomitant]
     Active Substance: PANTOPRAZOLE SODIUM
     Dosage: 40MG ORALLY ONCE A DAY
     Route: 048
     Dates: start: 20151223
  4. AUTRIN (INDIA) [Concomitant]
     Dosage: 1 CAPSULE
     Route: 048
     Dates: start: 20151223
  5. VITAMIN B12 [Concomitant]
     Active Substance: CYANOCOBALAMIN
     Dosage: 1 CAPSULE ONCE A DAY
     Route: 048
     Dates: start: 20151223
  6. OMNACORTIL [Concomitant]
     Active Substance: PREDNISOLONE
     Route: 048
     Dates: start: 20151223
  7. PREDNISOLONE. [Concomitant]
     Active Substance: PREDNISOLONE
     Route: 048
     Dates: start: 20151223
  8. OMNACORTIL [Concomitant]
     Active Substance: PREDNISOLONE
     Dosage: DAY 2 AND 3
     Route: 048
  9. METOPROLOL. [Concomitant]
     Active Substance: METOPROLOL
     Dosage: 50MG ORALLY ONCE A DAY
     Route: 048
     Dates: start: 20151223
  10. SEPTRAN (INDIA) [Concomitant]
     Dosage: 1 TABLET
     Route: 048
     Dates: start: 20151223
  11. PROLOMET-XL [Concomitant]
     Route: 048
     Dates: start: 20151223
  12. CELLCEPT [Suspect]
     Active Substance: MYCOPHENOLATE MOFETIL\MYCOPHENOLATE MOFETIL HYDROCHLORIDE
     Indication: RENAL TRANSPLANT
     Dosage: DRUG INTERUPED ON 31/JAN/2016
     Route: 048
     Dates: start: 20151223
  13. TACROLIMUS. [Concomitant]
     Active Substance: TACROLIMUS
     Dosage: 4.5 MG IN MORNING AT 07:00 AM, 4 MG IN EVENING- 07PM
     Route: 048
     Dates: start: 20151223
  14. OMNACORTIL [Concomitant]
     Active Substance: PREDNISOLONE
     Route: 048

REACTIONS (3)
  - Diarrhoea [Recovered/Resolved]
  - Investigation abnormal [Recovering/Resolving]
  - Pyrexia [Recovered/Resolved]

NARRATIVE: CASE EVENT DATE: 20160131
